FAERS Safety Report 9328471 (Version 1)
Quarter: 2013Q2

REPORT INFORMATION
  Report Type: Spontaneous
  Country: US (occurrence: US)
  Receive Date: 20130604
  Receipt Date: 20130604
  Transmission Date: 20140414
  Serious: No
  Sender: FDA-Public Use
  Company Number: US-SANOFI-AVENTIS-2012SA060451

PATIENT
  Sex: Male
  Weight: 91 kg

DRUGS (21)
  1. LANTUS [Suspect]
     Indication: TYPE 2 DIABETES MELLITUS
     Dosage: THERAPY START DATE: NUMBER OF YEARS AGO. DOSE:40 UNIT(S)
     Route: 058
     Dates: start: 200107
  2. APIDRA [Suspect]
     Indication: TYPE 2 DIABETES MELLITUS
     Route: 058
  3. ASPIRIN [Concomitant]
     Indication: CARDIAC DISORDER
  4. CALCIUM PHOSPHATE/CALCIUM SODIUM LACTATE/ERGOCALCIFEROL [Concomitant]
     Indication: NUTRITIONAL SUPPLEMENTATION
  5. CLONAZEPAM [Concomitant]
     Indication: SLEEP DISORDER
  6. DILTIAZEM [Concomitant]
     Indication: BLOOD PRESSURE
  7. OMEGA 3 [Concomitant]
     Indication: CARDIAC DISORDER
  8. HYDROCHLOROTHIAZIDE [Concomitant]
     Indication: BLOOD PRESSURE
  9. FERROUS SULFATE/IRON [Concomitant]
     Indication: BLOOD DISORDER
  10. LEVEMIR INSULIN [Concomitant]
     Indication: DIABETES MELLITUS
     Dosage: DOSE:35 UNIT(S)
  11. LISINOPRIL [Concomitant]
     Indication: BLOOD PRESSURE
  12. MAGNESIUM OXIDE [Concomitant]
  13. NIACIN [Concomitant]
     Indication: BLOOD CHOLESTEROL
  14. OMEPRAZOLE [Concomitant]
     Indication: ANTACID THERAPY
  15. PAROXETINE [Concomitant]
     Indication: STRESS
  16. POTASSIUM CHLORIDE [Concomitant]
     Indication: NUTRITIONAL SUPPLEMENTATION
  17. FENOFIBRATE [Concomitant]
     Indication: BLOOD TRIGLYCERIDES
  18. VESICARE [Concomitant]
     Indication: URINARY TRACT DISORDER
  19. VITAMIN D [Concomitant]
     Indication: NUTRITIONAL SUPPLEMENTATION
  20. WELCHOL [Concomitant]
     Indication: BLOOD CHOLESTEROL
  21. ZETIA [Concomitant]
     Indication: BLOOD CHOLESTEROL

REACTIONS (3)
  - Body fat disorder [Not Recovered/Not Resolved]
  - Weight increased [Not Recovered/Not Resolved]
  - Blood glucose abnormal [Unknown]
